FAERS Safety Report 9909599 (Version 3)
Quarter: 2014Q1

REPORT INFORMATION
  Report Type: Spontaneous
  Country: CA (occurrence: CA)
  Receive Date: 20140219
  Receipt Date: 20140312
  Transmission Date: 20141002
  Serious: Yes (Other)
  Sender: FDA-Public Use
  Company Number: CA-PFIZER INC-2014047438

PATIENT
  Age: 70 Year
  Sex: Male

DRUGS (2)
  1. TECTA [Suspect]
     Dosage: 40 MG, 1X/DAY
     Route: 048
     Dates: start: 201302
  2. LASIX [Concomitant]
     Dosage: UNK

REACTIONS (3)
  - Deafness unilateral [Not Recovered/Not Resolved]
  - Hypoacusis [Not Recovered/Not Resolved]
  - Vertigo [Recovering/Resolving]
